FAERS Safety Report 7562345-6 (Version None)
Quarter: 2011Q2

REPORT INFORMATION
  Report Type: 
  Country: None (occurrence: None)
  Receive Date: 20110620
  Receipt Date: 20110620
  Transmission Date: 20111010
  Serious: Yes (Other)
  Sender: FDA-Public Use
  Company Number: None

PATIENT
  Sex: Male
  Weight: 95.709 kg

DRUGS (1)
  1. SUTENT [Suspect]
     Indication: RENAL CANCER
     Dosage: 50 MG DAILY PO
     Route: 048
     Dates: start: 20110309, end: 20110519

REACTIONS (2)
  - METASTASES TO LYMPH NODES [None]
  - NEOPLASM PROGRESSION [None]
